FAERS Safety Report 25046753 (Version 1)
Quarter: 2025Q1

REPORT INFORMATION
  Report Type: Spontaneous
  Country: US (occurrence: US)
  Receive Date: 20250306
  Receipt Date: 20250306
  Transmission Date: 20250408
  Serious: Yes (Other)
  Sender: DR REDDYS
  Company Number: US-DRL-USA-USA/2025/02/003271

PATIENT
  Age: 73 Year
  Sex: Male

DRUGS (3)
  1. BENDAMUSTINE [Suspect]
     Active Substance: BENDAMUSTINE
     Indication: Cold type haemolytic anaemia
  2. RITUXIMAB [Concomitant]
     Active Substance: RITUXIMAB
     Indication: Cold type haemolytic anaemia
  3. IBRUTINIB [Concomitant]
     Active Substance: IBRUTINIB
     Indication: Cold type haemolytic anaemia

REACTIONS (1)
  - Drug ineffective for unapproved indication [Unknown]
